FAERS Safety Report 13692501 (Version 2)
Quarter: 2017Q3

REPORT INFORMATION
  Report Type: Spontaneous
  Country: US (occurrence: US)
  Receive Date: 20170627
  Receipt Date: 20170804
  Transmission Date: 20171127
  Serious: Yes (Other)
  Sender: FDA-Public Use
  Company Number: US-009507513-1706USA008535

PATIENT
  Sex: Female
  Weight: 87.08 kg

DRUGS (5)
  1. PLAQUENIL [Concomitant]
     Active Substance: HYDROXYCHLOROQUINE SULFATE
     Indication: RHEUMATOID ARTHRITIS
     Dosage: 200 MG, BID
  2. CELECOXIB. [Concomitant]
     Active Substance: CELECOXIB
     Indication: RHEUMATOID ARTHRITIS
     Dosage: 200 MG ONCE DAILY
     Route: 048
  3. REMERON [Suspect]
     Active Substance: MIRTAZAPINE
     Dosage: 90 MG A DAY
     Route: 048
  4. CELEBREX [Concomitant]
     Active Substance: CELECOXIB
     Indication: RHEUMATOID ARTHRITIS
     Dosage: 200 MG, ONCE DAILY
     Route: 048
  5. MOBIC [Concomitant]
     Active Substance: MELOXICAM
     Indication: RHEUMATOID ARTHRITIS
     Dosage: 15 MG, QD

REACTIONS (12)
  - Cholelithiasis [Recovering/Resolving]
  - Decreased appetite [Recovered/Resolved]
  - Prescribed overdose [Unknown]
  - Food craving [Unknown]
  - Drug withdrawal syndrome [Recovered/Resolved]
  - Hunger [Unknown]
  - Weight increased [Recovering/Resolving]
  - Back pain [Recovered/Resolved]
  - Gallbladder obstruction [Recovering/Resolving]
  - Diarrhoea [Recovered/Resolved]
  - Drug withdrawal headache [Recovered/Resolved]
  - Therapeutic response unexpected [Unknown]
